FAERS Safety Report 20578796 (Version 1)
Quarter: 2022Q1

REPORT INFORMATION
  Report Type: Spontaneous
  Country: CH (occurrence: CH)
  Receive Date: 20220310
  Receipt Date: 20220310
  Transmission Date: 20220423
  Serious: Yes (Death, Other)
  Sender: FDA-Public Use
  Company Number: CH-BoehringerIngelheim-2022-BI-158311

PATIENT
  Age: 75 Year
  Sex: Female

DRUGS (3)
  1. OFEV [Suspect]
     Active Substance: NINTEDANIB
     Indication: Systemic sclerosis pulmonary
     Dates: start: 20201007
  2. OFEV [Suspect]
     Active Substance: NINTEDANIB
     Indication: Anti-RNA polymerase III antibody positive
  3. ACTEMRA [Concomitant]
     Active Substance: TOCILIZUMAB
     Indication: Product used for unknown indication
     Dates: start: 202102

REACTIONS (2)
  - Death [Fatal]
  - Systemic scleroderma [Unknown]

NARRATIVE: CASE EVENT DATE: 20211201
